FAERS Safety Report 24627572 (Version 1)
Quarter: 2024Q4

REPORT INFORMATION
  Report Type: Spontaneous
  Country: FR (occurrence: FR)
  Receive Date: 20241116
  Receipt Date: 20241116
  Transmission Date: 20250114
  Serious: Yes (Hospitalization, Other)
  Sender: AUROBINDO
  Company Number: FR-AFSSAPS-RN2024001191

PATIENT
  Age: 13 Year
  Sex: Female

DRUGS (4)
  1. LEVOFLOXACIN [Suspect]
     Active Substance: LEVOFLOXACIN
     Indication: Infection
     Dosage: UNK
     Route: 048
     Dates: start: 20240915, end: 20241025
  2. FLUCONAZOLE [Concomitant]
     Active Substance: FLUCONAZOLE
     Indication: Infection
     Dosage: UNK
     Route: 048
     Dates: start: 20240915
  3. NALBUPHINE HYDROCHLORIDE [Concomitant]
     Active Substance: NALBUPHINE HYDROCHLORIDE
     Indication: Infection
     Dosage: UNK
     Route: 048
     Dates: start: 20241018
  4. Spasfon [Concomitant]
     Indication: Abdominal pain
     Dosage: UNK
     Route: 048
     Dates: start: 20241018

REACTIONS (1)
  - Inappropriate antidiuretic hormone secretion [Recovered/Resolved]

NARRATIVE: CASE EVENT DATE: 20241019
